FAERS Safety Report 17653538 (Version 1)
Quarter: 2020Q2

REPORT INFORMATION
  Report Type: Spontaneous
  Country: US (occurrence: US)
  Receive Date: 20200409
  Receipt Date: 20200409
  Transmission Date: 20200713
  Serious: Yes (Hospitalization, Other)
  Sender: FDA-Public Use
  Company Number: US-LUNDBECK-DKLU3013319

PATIENT
  Age: 1 Year
  Sex: Male
  Weight: 7 kg

DRUGS (3)
  1. SABRIL [Suspect]
     Active Substance: VIGABATRIN
     Indication: INFANTILE SPASMS
     Route: 048
     Dates: start: 202002
  2. ZANTAC [Concomitant]
     Active Substance: RANITIDINE HYDROCHLORIDE
     Indication: PRODUCT USED FOR UNKNOWN INDICATION
     Route: 065
  3. ORAPRED [Concomitant]
     Active Substance: PREDNISOLONE SODIUM PHOSPHATE
     Indication: INFANTILE SPASMS
     Dosage: TAPERING SCHEDULE
     Route: 065
     Dates: start: 20200221

REACTIONS (3)
  - Movement disorder [Unknown]
  - Tardive dyskinesia [Unknown]
  - Lethargy [Unknown]

NARRATIVE: CASE EVENT DATE: 202003
